FAERS Safety Report 6041303-7 (Version None)
Quarter: 2009Q1

REPORT INFORMATION
  Report Type: 
  Country: None (occurrence: None)
  Receive Date: 20090116
  Receipt Date: 20080929
  Transmission Date: 20090719
  Serious: No
  Sender: FDA-Public Use
  Company Number: US-BRISTOL-MYERS SQUIBB COMPANY-14351886

PATIENT
  Age: 36 Year
  Sex: Female

DRUGS (1)
  1. ABILIFY [Suspect]
     Indication: BIPOLAR II DISORDER
     Dosage: INITIALLY TAKEN 2MG  INCREASED TO 4MG LATER DOSE REDUCED TO 2MG THEN WITHDRAWN

REACTIONS (2)
  - ABNORMAL SENSATION IN EYE [None]
  - RASH [None]
